FAERS Safety Report 7486590-3 (Version None)
Quarter: 2011Q2

REPORT INFORMATION
  Report Type: 
  Country: None (occurrence: None)
  Receive Date: 20110517
  Receipt Date: 20110509
  Transmission Date: 20111010
  Serious: Yes (Hospitalization)
  Sender: FDA-Public Use
  Company Number: FR-PFIZER INC-HQWYE063816DEC05

PATIENT
  Age: 81 Year
  Sex: Female

DRUGS (6)
  1. CORDARONE [Suspect]
     Dosage: 5.0 DF,1X/WK
     Route: 048
  2. QUINAPRIL [Suspect]
     Dosage: 1 IU, 1X/DAY
     Route: 048
  3. FELDENE [Suspect]
     Dosage: IRREGULAR SELF-MEDIC ACTION
     Route: 048
     Dates: start: 20050727, end: 20051013
  4. FELDENE [Suspect]
     Dosage: 20.0 MG, 1X/DAY
     Route: 048
     Dates: start: 20050720, end: 20050726
  5. FELDENE [Suspect]
     Indication: BACK PAIN
     Dosage: 20.0 MG, 1X/DAY
     Route: 051
     Dates: start: 20050716, end: 20050719
  6. TRIVASTAL [Suspect]
     Dosage: 2 IU, 1X/DAY
     Route: 048

REACTIONS (2)
  - ANAEMIA MACROCYTIC [None]
  - HAEMOLYTIC ANAEMIA [None]
